FAERS Safety Report 4950232-9 (Version None)
Quarter: 2006Q1

REPORT INFORMATION
  Report Type: 
  Country: None (occurrence: None)
  Receive Date: 20060322
  Receipt Date: 20060313
  Transmission Date: 20060701
  Serious: Yes (Death)
  Sender: FDA-Public Use
  Company Number: US-BRISTOL-MYERS SQUIBB COMPANY-13312699

PATIENT
  Age: 64 Year
  Sex: Female
  Weight: 58 kg

DRUGS (9)
  1. MEGACE [Suspect]
     Indication: MALNUTRITION
     Route: 048
     Dates: start: 20060117, end: 20060308
  2. BENADRYL [Concomitant]
     Dates: start: 20050708
  3. HYDROXYZINE [Concomitant]
     Indication: SLEEP DISORDER
     Dates: start: 20050714
  4. KADIAN [Concomitant]
     Route: 048
     Dates: start: 20060206
  5. MEVACOR [Concomitant]
     Dates: start: 20050728
  6. PERCOCET TABS 5 MG/325 MG [Concomitant]
     Route: 048
     Dates: start: 20051208
  7. PHENERGAN HCL [Concomitant]
     Route: 048
     Dates: start: 20050630
  8. RENAGEL [Concomitant]
     Route: 048
     Dates: start: 20060105
  9. SYNTHROID [Concomitant]
     Route: 048
     Dates: start: 20050628

REACTIONS (1)
  - DEATH [None]
